FAERS Safety Report 13882058 (Version 1)
Quarter: 2017Q3

REPORT INFORMATION
  Report Type: Spontaneous
  Country: US (occurrence: US)
  Receive Date: 20170818
  Receipt Date: 20170818
  Transmission Date: 20171127
  Serious: Yes (Other)
  Sender: FDA-Public Use
  Company Number: US-COVIS PHARMA B.V.-2017COV00271

PATIENT
  Sex: Female

DRUGS (2)
  1. OMEPRAZOLE MAGNESIUM. [Suspect]
     Active Substance: OMEPRAZOLE MAGNESIUM
     Indication: GASTRIC PH DECREASED
     Dosage: UNK
     Route: 048
     Dates: start: 2013, end: 2017
  2. NEXIUM [Suspect]
     Active Substance: ESOMEPRAZOLE MAGNESIUM
     Indication: GASTRIC PH DECREASED
     Dosage: UNK
     Route: 048
     Dates: start: 2001, end: 2013

REACTIONS (5)
  - Acute kidney injury [Unknown]
  - Chronic kidney disease [Unknown]
  - Renal failure [Unknown]
  - Tubulointerstitial nephritis [Unknown]
  - End stage renal disease [Unknown]

NARRATIVE: CASE EVENT DATE: 201303
